FAERS Safety Report 23577553 (Version 1)
Quarter: 2024Q1

REPORT INFORMATION
  Report Type: Spontaneous
  Country: US (occurrence: US)
  Receive Date: 20240228
  Receipt Date: 20240228
  Transmission Date: 20240410
  Serious: No
  Sender: FDA-Public Use
  Company Number: US-Millicent Holdings Ltd.-MILL20240087

PATIENT
  Sex: Female

DRUGS (1)
  1. FEMRING [Suspect]
     Active Substance: ESTRADIOL ACETATE
     Indication: Menopausal symptoms
     Dosage: 0.05 MG/DAY
     Route: 067

REACTIONS (2)
  - Nausea [Recovered/Resolved]
  - Product storage error [None]

NARRATIVE: CASE EVENT DATE: 20240101
